FAERS Safety Report 12933143 (Version 6)
Quarter: 2022Q2

REPORT INFORMATION
  Report Type: Report from Study
  Country: US (occurrence: US)
  Receive Date: 20161111
  Receipt Date: 20220420
  Transmission Date: 20220720
  Serious: Yes (Other)
  Sender: FDA-Public Use
  Company Number: US-HORIZON-RAV-0241-2016

PATIENT

DRUGS (3)
  1. RAVICTI [Suspect]
     Active Substance: GLYCEROL PHENYLBUTYRATE
     Indication: Arginase deficiency
     Dosage: 1 ML, TID 3 SEPARATED DOSES
     Route: 065
     Dates: start: 20160708
  2. RAVICTI [Suspect]
     Active Substance: GLYCEROL PHENYLBUTYRATE
     Dosage: UNK
     Route: 065
  3. BOTOX [Concomitant]
     Active Substance: ONABOTULINUMTOXINA
     Indication: Gait disturbance
     Dosage: EVERY 3 MONTHS
     Route: 065
     Dates: start: 2021

REACTIONS (3)
  - Ammonia increased [Recovered/Resolved]
  - Intentional self-injury [Unknown]
  - Amino acid level decreased [Not Recovered/Not Resolved]

NARRATIVE: CASE EVENT DATE: 20220301
